FAERS Safety Report 9703970 (Version 1)
Quarter: 2013Q4

REPORT INFORMATION
  Report Type: Spontaneous
  Country: DK (occurrence: FR)
  Receive Date: 20131122
  Receipt Date: 20131122
  Transmission Date: 20140711
  Serious: Yes (Hospitalization)
  Sender: FDA-Public Use
  Company Number: FR-FRI-1000051629

PATIENT
  Age: 63 Year
  Sex: Female

DRUGS (6)
  1. ESCITALOPRAM [Suspect]
     Indication: DEPRESSION
     Dosage: 1 DF
     Route: 048
     Dates: start: 201105, end: 20130909
  2. BIPROFENID [Interacting]
     Indication: SCIATICA
     Route: 048
     Dates: start: 201308, end: 20130909
  3. LYRICA [Concomitant]
     Dosage: 2 DF
     Route: 048
  4. OXYNORM [Concomitant]
     Route: 048
  5. SERESTA [Concomitant]
     Dosage: 1 DF
     Dates: start: 201308
  6. BACLOFENE [Concomitant]
     Dosage: 3 DF

REACTIONS (2)
  - Haematoma [Recovering/Resolving]
  - Drug interaction [Recovering/Resolving]
